FAERS Safety Report 7061875-3 (Version None)
Quarter: 2010Q4

REPORT INFORMATION
  Report Type: 
  Country: None (occurrence: None)
  Receive Date: 20101026
  Receipt Date: 20101015
  Transmission Date: 20110411
  Serious: Yes (Death, Hospitalization)
  Sender: FDA-Public Use
  Company Number: AU-ROCHE-719140

PATIENT
  Sex: Female

DRUGS (7)
  1. XELODA [Suspect]
     Route: 048
     Dates: start: 20100616, end: 20100622
  2. METOCLOPRAMIDE [Concomitant]
     Indication: NAUSEA
     Route: 048
     Dates: start: 20100616
  3. CLEXANE [Concomitant]
     Route: 048
  4. FRUSEMIDE [Concomitant]
     Dosage: IN THE MORNING
  5. DILATREND [Concomitant]
  6. ARATAC [Concomitant]
     Dosage: IN THE MORNING
  7. WARFARIN SODIUM [Concomitant]
     Dosage: IN THE MORNING

REACTIONS (7)
  - HAEMOGLOBIN DECREASED [None]
  - LIP SWELLING [None]
  - MOUTH ULCERATION [None]
  - NEUTROPENIA [None]
  - RASH [None]
  - RENAL FAILURE ACUTE [None]
  - THROMBOCYTOPENIA [None]
